FAERS Safety Report 7231851-6 (Version None)
Quarter: 2011Q1

REPORT INFORMATION
  Report Type: 
  Country: None (occurrence: None)
  Receive Date: 20110118
  Receipt Date: 20110110
  Transmission Date: 20110831
  Serious: Yes (Death, Hospitalization)
  Sender: FDA-Public Use
  Company Number: FR-PFIZER INC-2010147100

PATIENT
  Age: 94 Year
  Sex: Female

DRUGS (2)
  1. LAXATIVES [Concomitant]
     Indication: PRODUCT USED FOR UNKNOWN INDICATION
     Route: 065
  2. CORDARONE [Suspect]
     Indication: PRODUCT USED FOR UNKNOWN INDICATION
     Dosage: 200 MG, 1X/DAY
     Route: 048
     Dates: start: 20070101

REACTIONS (3)
  - THROMBOCYTOPENIA [None]
  - NEUROPATHY PERIPHERAL [None]
  - WHITE BLOOD CELL COUNT INCREASED [None]
